FAERS Safety Report 9483001 (Version 6)
Quarter: 2013Q4

REPORT INFORMATION
  Report Type: Spontaneous
  Country: US (occurrence: US)
  Receive Date: 20130828
  Receipt Date: 20131113
  Transmission Date: 20140711
  Serious: Yes (Hospitalization)
  Sender: FDA-Public Use
  Company Number: US-ACTELION-A-US2013-87344

PATIENT
  Age: 79 Year
  Sex: Female

DRUGS (2)
  1. VENTAVIS [Suspect]
     Indication: PULMONARY ARTERIAL HYPERTENSION
     Dosage: UNK
     Route: 055
  2. SILDENAFIL [Concomitant]

REACTIONS (11)
  - Chronic obstructive pulmonary disease [Unknown]
  - Pneumonia [Unknown]
  - Pulmonary arterial hypertension [Unknown]
  - Dyspnoea [Unknown]
  - Respiratory distress [Unknown]
  - Cardiac failure congestive [Unknown]
  - Oedema [Unknown]
  - Speech disorder [Unknown]
  - Drug dose omission [Unknown]
  - Swelling [Unknown]
  - Cellulitis [Unknown]
